FAERS Safety Report 6802478-2 (Version None)
Quarter: 2010Q2

REPORT INFORMATION
  Report Type: 
  Country: None (occurrence: None)
  Receive Date: 20100628
  Receipt Date: 20100611
  Transmission Date: 20101027
  Serious: Yes (Other)
  Sender: FDA-Public Use
  Company Number: IT-RANBAXY-2010RR-35052

PATIENT
  Age: 25 Year
  Sex: Male

DRUGS (2)
  1. METFORMIN HCL [Suspect]
     Indication: HYPERINSULINAEMIA
     Dosage: 500 MG, TID
     Dates: start: 20080601
  2. AMISULPRIDE [Suspect]
     Indication: PSYCHIATRIC SYMPTOM
     Dosage: 200 MG, UNK

REACTIONS (2)
  - DRUG INTERACTION [None]
  - RHABDOMYOLYSIS [None]
